FAERS Safety Report 4810902-X (Version None)
Quarter: 2005Q4

REPORT INFORMATION
  Report Type: 
  Country: None (occurrence: None)
  Receive Date: 20051025
  Receipt Date: 20051014
  Transmission Date: 20060501
  Serious: Yes (Other)
  Sender: FDA-Public Use
  Company Number: 2005143183

PATIENT
  Age: 44 Year
  Sex: Female
  Weight: 51.7101 kg

DRUGS (4)
  1. ZYRTEC [Suspect]
     Indication: SKIN LESION
     Dosage: 1 IN 1 D, ORAL
     Route: 048
     Dates: start: 20051010, end: 20051010
  2. ZITHROMAX [Suspect]
     Indication: ILL-DEFINED DISORDER
  3. BENADRYL [Suspect]
     Indication: URTICARIA
     Dosage: 50 MG, EVERY 5-6 HOURS, ORAL
     Route: 048
     Dates: start: 20051001
  4. SYNTHROID [Concomitant]

REACTIONS (8)
  - HYPERSENSITIVITY [None]
  - NERVOUS SYSTEM DISORDER [None]
  - PHARYNGEAL OEDEMA [None]
  - RASH MACULAR [None]
  - SKIN LESION [None]
  - SOMNOLENCE [None]
  - THROAT TIGHTNESS [None]
  - URTICARIA [None]
